FAERS Safety Report 10202712 (Version 1)
Quarter: 2014Q2

REPORT INFORMATION
  Report Type: Spontaneous
  Country: IN (occurrence: IN)
  Receive Date: 20140528
  Receipt Date: 20140528
  Transmission Date: 20141212
  Serious: Yes (Other)
  Sender: FDA-Public Use
  Company Number: IN-WATSON-2014-11330

PATIENT
  Age: 35 Year
  Sex: Male

DRUGS (1)
  1. DEXAMETHASONE (UNKNOWN) [Suspect]
     Indication: RHINITIS
     Dosage: UNK
     Route: 045

REACTIONS (2)
  - Chorioretinopathy [Recovered/Resolved]
  - Incorrect route of drug administration [Unknown]
